FAERS Safety Report 19241935 (Version 2)
Quarter: 2021Q4

REPORT INFORMATION
  Report Type: Spontaneous
  Country: IT (occurrence: IT)
  Receive Date: 20210511
  Receipt Date: 20211028
  Transmission Date: 20220303
  Serious: Yes (Hospitalization, Other)
  Sender: FDA-Public Use
  Company Number: NVSC2021IT103159

PATIENT
  Age: 52 Year
  Sex: Female

DRUGS (2)
  1. ZOLPIDEM [Suspect]
     Active Substance: ZOLPIDEM TARTRATE
     Indication: Insomnia
     Dosage: 450 MG, QD DROPS (ONE BOTTLE AND HALF) BEDTIME
     Route: 048
  2. ZOLPIDEM [Suspect]
     Active Substance: ZOLPIDEM TARTRATE
     Dosage: 150 MG, QD (REDUCED ZOLPIDEM OF 10 MG/DAY)
     Route: 048

REACTIONS (6)
  - Drug abuse [Unknown]
  - Euphoric mood [Unknown]
  - Psychomotor hyperactivity [Unknown]
  - Withdrawal syndrome [Unknown]
  - Drug dependence [Unknown]
  - Intentional product misuse [Unknown]
